FAERS Safety Report 5149817-9 (Version None)
Quarter: 2006Q4

REPORT INFORMATION
  Report Type: 
  Country: None (occurrence: None)
  Receive Date: 20061113
  Receipt Date: 20061031
  Transmission Date: 20070319
  Serious: Yes (Other)
  Sender: FDA-Public Use
  Company Number: US-ELI_LILLY_AND_COMPANY-US200611000126

PATIENT
  Age: 37 Year
  Sex: Male

DRUGS (4)
  1. ILETIN BEEF/PORK PROTAMINE ZINC [Suspect]
     Indication: DIABETES MELLITUS INSULIN-DEPENDENT
     Dosage: UNK, UNKNOWN
     Dates: start: 19460101
  2. HUMULIN L [Suspect]
     Indication: DIABETES MELLITUS INSULIN-DEPENDENT
     Dosage: UNK, UNKNOWN
     Dates: start: 19460101
  3. ILETIN [Suspect]
     Indication: DIABETES MELLITUS INSULIN-DEPENDENT
     Dosage: UNK, UNKNOWN
     Dates: start: 19460101
  4. ILETIN [Suspect]
     Dosage: UNK, UNKNOWN
     Dates: start: 19460101

REACTIONS (1)
  - BLINDNESS [None]
